FAERS Safety Report 8221954-1 (Version None)
Quarter: 2012Q1

REPORT INFORMATION
  Report Type: 
  Country: None (occurrence: None)
  Receive Date: 20120320
  Receipt Date: 20120312
  Transmission Date: 20120608
  Serious: Yes (Hospitalization)
  Sender: FDA-Public Use
  Company Number: US-JNJFOC-20120108656

PATIENT
  Sex: Female
  Weight: 78.93 kg

DRUGS (7)
  1. REMICADE [Suspect]
     Route: 042
     Dates: start: 20110922
  2. SKELAXIN [Suspect]
     Indication: BONE DISORDER
     Route: 065
     Dates: start: 20120101
  3. CALCIUM CARBONATE [Concomitant]
     Indication: BONE DISORDER
     Route: 048
     Dates: end: 20120101
  4. REMICADE [Suspect]
     Indication: RHEUMATOID ARTHRITIS
     Route: 042
     Dates: start: 20111229
  5. RECLAST [Concomitant]
     Indication: OSTEOPOROSIS
     Route: 042
     Dates: start: 20110101
  6. CALCIUM CARBONATE [Concomitant]
     Indication: BONE DISORDER
     Route: 048
     Dates: end: 20120101
  7. CITRACAL PLUS D [Concomitant]
     Indication: BONE DISORDER
     Route: 048
     Dates: end: 20120101

REACTIONS (9)
  - CARDIAC DISORDER [None]
  - HEADACHE [None]
  - VOMITING [None]
  - DIZZINESS [None]
  - GASTROINTESTINAL FUNGAL INFECTION [None]
  - ABDOMINAL DISCOMFORT [None]
  - MUSCULOSKELETAL CHEST PAIN [None]
  - INJECTION SITE HAEMORRHAGE [None]
  - FUNGAL OESOPHAGITIS [None]
